FAERS Safety Report 17656455 (Version 1)
Quarter: 2020Q2

REPORT INFORMATION
  Report Type: Spontaneous
  Country: GB (occurrence: GB)
  Receive Date: 20200410
  Receipt Date: 20200410
  Transmission Date: 20200713
  Serious: Yes (Other)
  Sender: FDA-Public Use
  Company Number: GB-VERTEX PHARMACEUTICALS-2020-008340

PATIENT

DRUGS (19)
  1. PROMIXIN [COLISTIMETHATE SODIUM] [Concomitant]
     Dosage: UNK, BID
  2. DORNASE ALFA. [Concomitant]
     Active Substance: DORNASE ALFA
     Dosage: BID SOMETIMES TID IF NEEDED
  3. INSULIN RAPID [Concomitant]
     Active Substance: INSULIN NOS
  4. ONDANSETRON [Concomitant]
     Active Substance: ONDANSETRON
  5. MOVICOL PLAIN [Concomitant]
     Active Substance: POLYETHYLENE GLYCOL 3350\POTASSIUM CHLORIDE\SODIUM BICARBONATE\SODIUM CHLORIDE
  6. AZITHROMYCIN ANHYDROUS. [Concomitant]
     Active Substance: AZITHROMYCIN ANHYDROUS
     Dosage: UNK, TID
  7. NUTRIZYM 22 [Concomitant]
  8. SERTRALINE [Concomitant]
     Active Substance: SERTRALINE HYDROCHLORIDE
  9. CALCI CHEW [Concomitant]
  10. SYMKEVI [Suspect]
     Active Substance: IVACAFTOR\TEZACAFTOR
     Indication: CYSTIC FIBROSIS
     Dosage: UNKNOWN
     Route: 048
     Dates: start: 20191109
  11. AZTREONAM COMP [Concomitant]
     Dosage: UNK, TID
  12. SALBUTAMOL A [Concomitant]
  13. WARFARIN [Concomitant]
     Active Substance: WARFARIN
  14. KALYDECO [Suspect]
     Active Substance: IVACAFTOR
     Indication: CYSTIC FIBROSIS
     Dosage: UNKNOWN
     Route: 048
     Dates: start: 20191109
  15. CALCIFEROL CO [Concomitant]
  16. SLOW SODIUM [Concomitant]
  17. DOXYCYCLINE. [Concomitant]
     Active Substance: DOXYCYCLINE
     Dosage: UNK, BID
  18. FEXOFENADINE [Concomitant]
     Active Substance: FEXOFENADINE HYDROCHLORIDE
  19. PARACETAMOL [Concomitant]
     Active Substance: ACETAMINOPHEN

REACTIONS (2)
  - Dysphagia [Unknown]
  - Dyspnoea [Unknown]

NARRATIVE: CASE EVENT DATE: 20200331
